FAERS Safety Report 7720293-2 (Version None)
Quarter: 2011Q3

REPORT INFORMATION
  Report Type: 
  Country: None (occurrence: None)
  Receive Date: 20110825
  Receipt Date: 20110812
  Transmission Date: 20111222
  Serious: Yes (Death, Hospitalization)
  Sender: FDA-Public Use
  Company Number: IPC201108-003133

PATIENT
  Age: 68 Year
  Sex: Male

DRUGS (3)
  1. ALLOPURINOL [Suspect]
     Indication: HYPERURICAEMIA
  2. FUROSEMIDE [Suspect]
     Indication: CARDIAC FAILURE CONGESTIVE
  3. PREDNISOLONE [Suspect]
     Indication: DRUG ERUPTION
     Dosage: DAILY, ORAL
     Route: 048

REACTIONS (20)
  - DRUG ERUPTION [None]
  - BLOOD UREA INCREASED [None]
  - HAEMOPTYSIS [None]
  - GASTROINTESTINAL HAEMORRHAGE [None]
  - BLOOD CREATININE INCREASED [None]
  - HTLV-1 TEST POSITIVE [None]
  - STRONGYLOIDIASIS [None]
  - GASTROINTESTINAL EROSION [None]
  - ASPARTATE AMINOTRANSFERASE INCREASED [None]
  - DRUG HYPERSENSITIVITY [None]
  - CYTOMEGALOVIRUS INFECTION [None]
  - ACUTE RESPIRATORY DISTRESS SYNDROME [None]
  - DEPRESSED LEVEL OF CONSCIOUSNESS [None]
  - WHITE BLOOD CELL COUNT INCREASED [None]
  - PYREXIA [None]
  - INTERSTITIAL LUNG DISEASE [None]
  - EOSINOPHILIA [None]
  - BLOOD LACTATE DEHYDROGENASE INCREASED [None]
  - PULMONARY ALVEOLAR HAEMORRHAGE [None]
  - BLOOD ALKALINE PHOSPHATASE INCREASED [None]
